FAERS Safety Report 6526725-X (Version None)
Quarter: 2009Q4

REPORT INFORMATION
  Report Type: 
  Country: None (occurrence: None)
  Receive Date: 20091230
  Receipt Date: 20091221
  Transmission Date: 20100525
  Serious: Yes (Death, Other)
  Sender: FDA-Public Use
  Company Number: 2009S1008916

PATIENT
  Age: 64 Year
  Sex: Female
  Weight: 58.9676 kg

DRUGS (2)
  1. PHOSPHOSODA UNFLAVORED [Suspect]
     Indication: COLONOSCOPY
     Dosage: 45 ML; ; PO
     Route: 048
     Dates: start: 20080612, end: 20080612
  2. INSULIN [Concomitant]

REACTIONS (4)
  - BLOOD GLUCOSE INCREASED [None]
  - MALAISE [None]
  - NAUSEA [None]
  - VOMITING [None]
